FAERS Safety Report 5291139-X (Version None)
Quarter: 2007Q2

REPORT INFORMATION
  Report Type: 
  Country: None (occurrence: None)
  Receive Date: 20070409
  Receipt Date: 20070330
  Transmission Date: 20071010
  Serious: Yes (Other)
  Sender: FDA-Public Use
  Company Number: US-AVENTIS-200712277US

PATIENT
  Age: 63 Year
  Sex: Female

DRUGS (8)
  1. LANTUS [Suspect]
     Dates: start: 20070101
  2. LANTUS [Suspect]
  3. LANTUS [Suspect]
  4. NORVASC [Suspect]
     Dosage: DOSE: UNK
  5. APIDRA [Concomitant]
     Dosage: DOSE: SLIDING SCALE
  6. PLAVIX [Concomitant]
     Dosage: DOSE: UNK
  7. DEPAKOTE [Concomitant]
     Dosage: DOSE: UNK
  8. XANAX [Concomitant]
     Dosage: DOSE: UNK

REACTIONS (2)
  - HYPOTENSION [None]
  - LOSS OF CONSCIOUSNESS [None]
